FAERS Safety Report 11368625 (Version 2)
Quarter: 2016Q1

REPORT INFORMATION
  Report Type: Spontaneous
  Country: JP (occurrence: JP)
  Receive Date: 20150812
  Receipt Date: 20160116
  Transmission Date: 20160525
  Serious: Yes (Hospitalization)
  Sender: FDA-Public Use
  Company Number: JP-AMGEN-JPNSP2015080975

PATIENT
  Age: 37 Year
  Sex: Female

DRUGS (3)
  1. CYCLOPHOSPHAMIDE MONOHYDRATE [Concomitant]
     Active Substance: CYCLOPHOSPHAMIDE
     Indication: BREAST CANCER
     Dosage: UNK
     Route: 042
  2. G-LASTA [Suspect]
     Active Substance: PEGFILGRASTIM
     Indication: COLONY STIMULATING FACTOR PROPHYLAXIS
     Dosage: UNK
     Route: 058
  3. DOXORUBICIN HYDROCHLORIDE. [Concomitant]
     Active Substance: DOXORUBICIN HYDROCHLORIDE
     Indication: BREAST CANCER
     Dosage: UNK
     Route: 042

REACTIONS (1)
  - Pneumonia [Recovered/Resolved]
